FAERS Safety Report 18437708 (Version 1)
Quarter: 2020Q4

REPORT INFORMATION
  Report Type: Spontaneous
  Country: DE (occurrence: DE)
  Receive Date: 20201028
  Receipt Date: 20201028
  Transmission Date: 20210114
  Serious: Yes (Life-Threatening, Hospitalization)
  Sender: FDA-Public Use
  Company Number: DE-ANIPHARMA-2020-DE-000247

PATIENT
  Sex: Male

DRUGS (7)
  1. METFORMIN [Concomitant]
     Active Substance: METFORMIN HYDROCHLORIDE
     Dosage: 500 MG DAILY
     Route: 065
  2. VICTOZA [Concomitant]
     Active Substance: LIRAGLUTIDE
     Dosage: 0.6 DAILY / DOSE TEXT: 1.2 DAILY
     Route: 058
  3. HYDROCHLOROTHIAZIDE. [Concomitant]
     Active Substance: HYDROCHLOROTHIAZIDE
     Dosage: 12.5 MG UNK
     Route: 065
  4. PANTOZOL [Concomitant]
     Active Substance: PANTOPRAZOLE SODIUM
     Dosage: 40 MG DAILY
     Route: 065
  5. CANDESARTAN CILEXETIL. [Suspect]
     Active Substance: CANDESARTAN CILEXETIL
     Indication: PRODUCT USED FOR UNKNOWN INDICATION
     Dosage: UNK / 16 MG QAM
     Route: 048
  6. ACETYLSALICYLIC ACID [Concomitant]
     Active Substance: ASPIRIN
     Dosage: 100 MG DAILY
     Route: 065
  7. SIMVASTATIN. [Concomitant]
     Active Substance: SIMVASTATIN
     Dosage: 20 MG DAILY
     Route: 065

REACTIONS (13)
  - Diabetic metabolic decompensation [Recovering/Resolving]
  - Hypertension [Unknown]
  - Chronic kidney disease [Unknown]
  - Peripheral arterial occlusive disease [Unknown]
  - Hepatic steatosis [Unknown]
  - Neuropathy peripheral [Unknown]
  - Obesity [Unknown]
  - Diabetes mellitus [Recovering/Resolving]
  - Tobacco abuse [Unknown]
  - Coronary artery disease [Unknown]
  - Aortic arteriosclerosis [Unknown]
  - Acute kidney injury [Unknown]
  - Trifascicular block [Unknown]
